FAERS Safety Report 9398935 (Version 6)
Quarter: 2015Q2

REPORT INFORMATION
  Report Type: Spontaneous
  Country: US (occurrence: US)
  Receive Date: 20130712
  Receipt Date: 20150521
  Transmission Date: 20150821
  Serious: Yes (Death, Hospitalization, Other)
  Sender: FDA-Public Use
  Company Number: US-009507513-1307USA004467

PATIENT
  Sex: Female
  Weight: 48.73 kg

DRUGS (1)
  1. FOSAMAX [Suspect]
     Active Substance: ALENDRONATE SODIUM
     Indication: OSTEOPOROSIS
     Dosage: UNK
     Route: 048
     Dates: start: 2002, end: 2010

REACTIONS (40)
  - Cardiac failure congestive [Unknown]
  - Nausea [Recovered/Resolved]
  - Foot fracture [Unknown]
  - Foot fracture [Unknown]
  - Gastrointestinal disorder [Unknown]
  - Pelvic fracture [Unknown]
  - Tonsillectomy [Unknown]
  - Abdominal discomfort [Unknown]
  - Oesophageal rupture [Unknown]
  - Cardiac failure congestive [Unknown]
  - Gingival operation [Unknown]
  - Weight decreased [Unknown]
  - Femur fracture [Unknown]
  - Intramedullary rod insertion [Unknown]
  - Thromboembolectomy [Unknown]
  - Dental implantation [Unknown]
  - Mitral valve incompetence [Unknown]
  - Gingivectomy [Unknown]
  - Diarrhoea [Unknown]
  - Constipation [Unknown]
  - Deep vein thrombosis [Unknown]
  - Peripheral embolism [Unknown]
  - Viral cardiomyopathy [Unknown]
  - Cardiac failure congestive [Unknown]
  - Aspiration [Unknown]
  - Cardio-respiratory arrest [Unknown]
  - Vomiting [Recovered/Resolved]
  - Anaemia postoperative [Unknown]
  - Pulmonary embolism [Unknown]
  - Coma [Unknown]
  - Bunion operation [Unknown]
  - Radicular syndrome [Unknown]
  - Urinary tract infection [Unknown]
  - Cachexia [Unknown]
  - Debridement [Unknown]
  - Death [Fatal]
  - Pelvic fracture [Unknown]
  - Heparin-induced thrombocytopenia [Unknown]
  - Joint swelling [Unknown]
  - Nausea [Unknown]

NARRATIVE: CASE EVENT DATE: 200208
